FAERS Safety Report 11655443 (Version 1)
Quarter: 2015Q4

REPORT INFORMATION
  Report Type: Spontaneous
  Country: US (occurrence: US)
  Receive Date: 20151023
  Receipt Date: 20151023
  Transmission Date: 20160304
  Serious: Yes (Other)
  Sender: FDA-Public Use
  Company Number: US-BAYER-2015-446432

PATIENT
  Sex: Female

DRUGS (1)
  1. CIPRO [Suspect]
     Active Substance: CIPROFLOXACIN HYDROCHLORIDE
     Indication: URINARY TRACT INFECTION
     Dosage: UNK
     Dates: start: 201406

REACTIONS (9)
  - Headache [None]
  - Neuropathy peripheral [None]
  - Areflexia [None]
  - Burning sensation [None]
  - Vision blurred [None]
  - Loss of proprioception [None]
  - Myoclonus [None]
  - Dizziness [None]
  - Hypovitaminosis [None]

NARRATIVE: CASE EVENT DATE: 2014
